FAERS Safety Report 6303872-9 (Version None)
Quarter: 2009Q3

REPORT INFORMATION
  Report Type: 
  Country: None (occurrence: None)
  Receive Date: 20090807
  Receipt Date: 20090807
  Transmission Date: 20100115
  Serious: Yes (Life-Threatening, Hospitalization)
  Sender: FDA-Public Use
  Company Number: None

PATIENT
  Sex: Male
  Weight: 87.0906 kg

DRUGS (1)
  1. CEFUROXIME [Suspect]
     Indication: INFECTION
     Dosage: 500MG BID ORAL
     Route: 048
     Dates: start: 20080821

REACTIONS (2)
  - CARDIO-RESPIRATORY ARREST [None]
  - HYPERSENSITIVITY [None]
